FAERS Safety Report 17443498 (Version 1)
Quarter: 2020Q1

REPORT INFORMATION
  Report Type: Spontaneous
  Country: US (occurrence: US)
  Receive Date: 20200206
  Receipt Date: 20200206
  Transmission Date: 20200409
  Serious: Yes (Other)
  Sender: FDA-Public Use
  Company Number: None

PATIENT
  Age: 61 Year
  Sex: Male

DRUGS (1)
  1. CEFTRIAXONE SODIUM. [Suspect]
     Active Substance: CEFTRIAXONE SODIUM
     Indication: BACTERIAL INFECTION
     Dosage: ?          OTHER FREQUENCY:Q12H;?
     Route: 042
     Dates: start: 20200116

REACTIONS (3)
  - Peripheral swelling [None]
  - Therapy cessation [None]
  - Swelling face [None]

NARRATIVE: CASE EVENT DATE: 20200128
